FAERS Safety Report 10475061 (Version 1)
Quarter: 2014Q3

REPORT INFORMATION
  Report Type: Spontaneous
  Country: US (occurrence: None)
  Receive Date: 20140924
  Receipt Date: 20140924
  Transmission Date: 20150326
  Serious: Yes (Hospitalization)
  Sender: FDA-Public Use
  Company Number: None

PATIENT
  Age: 34 Year
  Sex: Female
  Weight: 99.79 kg

DRUGS (1)
  1. TUSSIN [Suspect]
     Active Substance: GUAIFENESIN
     Indication: COUGH
     Dates: start: 20140605

REACTIONS (7)
  - Tremor [None]
  - Lip swelling [None]
  - Paraesthesia [None]
  - Swelling face [None]
  - Hallucination [None]
  - Mental disorder [None]
  - Anxiety [None]

NARRATIVE: CASE EVENT DATE: 20140605
